FAERS Safety Report 24940330 (Version 1)
Quarter: 2025Q1

REPORT INFORMATION
  Report Type: Spontaneous
  Country: US (occurrence: US)
  Receive Date: 20250207
  Receipt Date: 20250207
  Transmission Date: 20250409
  Serious: No
  Sender: GE HEALTHCARE
  Company Number: US-GE HEALTHCARE-2025CSU001476

PATIENT

DRUGS (1)
  1. CLARISCAN [Suspect]
     Active Substance: GADOTERATE MEGLUMINE
     Route: 061

REACTIONS (3)
  - Occupational exposure to product [Recovered/Resolved]
  - Product leakage [Recovered/Resolved]
  - No adverse event [Recovered/Resolved]
